FAERS Safety Report 26197338 (Version 1)
Quarter: 2025Q4

REPORT INFORMATION
  Report Type: Spontaneous
  Country: EU (occurrence: EU)
  Receive Date: 20251224
  Receipt Date: 20251224
  Transmission Date: 20260117
  Serious: Yes (Hospitalization, Other)
  Sender: RECKITT BENCKISER
  Company Number: EU-INDIVIOR UK LIMITED-INDV-179056-2025

PATIENT
  Age: 49 Year
  Sex: Male

DRUGS (8)
  1. BUPRENORPHINE [Suspect]
     Active Substance: BUPRENORPHINE
     Indication: Product used for unknown indication
     Dosage: UNK
     Route: 065
  2. CODEINE [Suspect]
     Active Substance: CODEINE
     Indication: Product used for unknown indication
     Dosage: 30 MILLIGRAM, BID (IMMEDIATE RELEASE) (BEFORE SURGERY)
     Route: 065
  3. CODEINE [Suspect]
     Active Substance: CODEINE
     Dosage: 30 MILLIGRAM, BID (IMMEDIATE RELEASE), ONE MONTH AFTER SURGERY
     Route: 065
  4. CODEINE [Suspect]
     Active Substance: CODEINE
     Dosage: 30 MILLIGRAM, BID (IMMEDIATE RELEASE), SIX MONTH AFTER SURGERY
     Route: 065
  5. CODEINE [Suspect]
     Active Substance: CODEINE
     Dosage: 30 MILLIGRAM, BID (IMMEDIATE RELEASE), TWELVE MONTH AFTER SURGERY
     Route: 065
  6. ETORICOXIB [Suspect]
     Active Substance: ETORICOXIB
     Indication: Product used for unknown indication
     Dosage: UNK
     Route: 065
  7. METFORMIN [Suspect]
     Active Substance: METFORMIN HYDROCHLORIDE
     Indication: Product used for unknown indication
     Dosage: UNK
     Route: 065
  8. ACETAMINOPHEN [Suspect]
     Active Substance: ACETAMINOPHEN
     Indication: Product used for unknown indication
     Dosage: UNK
     Route: 065

REACTIONS (1)
  - Obesity [Unknown]
